FAERS Safety Report 16292193 (Version 1)
Quarter: 2019Q2

REPORT INFORMATION
  Report Type: Spontaneous
  Country: FR (occurrence: FR)
  Receive Date: 20190509
  Receipt Date: 20190509
  Transmission Date: 20190711
  Serious: Yes (Other)
  Sender: FDA-Public Use
  Company Number: FR-TEVA-2019-FR-1047168

PATIENT
  Age: 14 Year
  Sex: Male
  Weight: 57 kg

DRUGS (2)
  1. HUMIRA [Suspect]
     Active Substance: ADALIMUMAB
     Indication: AUTOIMMUNE UVEITIS
     Route: 058
     Dates: start: 2015, end: 201903
  2. METHOTREXATE. [Suspect]
     Active Substance: METHOTREXATE
     Indication: AUTOIMMUNE UVEITIS
     Route: 048
     Dates: start: 2013, end: 2017

REACTIONS (1)
  - Hodgkin^s disease nodular sclerosis stage III [Not Recovered/Not Resolved]

NARRATIVE: CASE EVENT DATE: 20190308
